FAERS Safety Report 5399950-1 (Version None)
Quarter: 2007Q3

REPORT INFORMATION
  Report Type: 
  Country: None (occurrence: None)
  Receive Date: 20070730
  Receipt Date: 20070720
  Transmission Date: 20080115
  Serious: Yes (Other)
  Sender: FDA-Public Use
  Company Number: US-JNJFOC-20070705263

PATIENT
  Sex: Male
  Weight: 104.33 kg

DRUGS (8)
  1. FENTANYL TRANSDERMAL SYSTEM [Suspect]
     Route: 062
  2. FENTANYL TRANSDERMAL SYSTEM [Suspect]
     Indication: SPINAL CORD INJURY
     Route: 062
  3. NEURONTIN [Concomitant]
     Indication: PAIN
     Route: 048
  4. DEPAKOTE [Concomitant]
     Indication: PAIN
     Route: 048
  5. XANAX [Concomitant]
     Indication: NERVOUSNESS
     Dosage: EVERY 6 HOURS AS NECESSARY
     Route: 048
  6. VYTORIN [Concomitant]
     Indication: BLOOD CHOLESTEROL
     Route: 048
  7. VICODIN [Concomitant]
     Indication: PAIN
     Dosage: 7.5/ 750 MG, 1 EVERY 4 HOURS AS NECESSARY
     Route: 048
  8. VALIUM [Concomitant]
     Indication: MUSCLE SPASMS
     Dosage: AS NECESSARY
     Route: 048

REACTIONS (4)
  - BIPOLAR DISORDER [None]
  - DEPRESSION [None]
  - NARCOLEPSY [None]
  - SLEEP APNOEA SYNDROME [None]
